FAERS Safety Report 17533778 (Version 2)
Quarter: 2020Q1

REPORT INFORMATION
  Report Type: Spontaneous
  Country: CR (occurrence: CR)
  Receive Date: 20200312
  Receipt Date: 20200323
  Transmission Date: 20200409
  Serious: Yes (Death, Hospitalization, Other)
  Sender: FDA-Public Use
  Company Number: CR-PFIZER INC-2020108468

PATIENT
  Age: 80 Year
  Sex: Male

DRUGS (1)
  1. PRISTIQ EXTENDED-RELEASE [Suspect]
     Active Substance: DESVENLAFAXINE SUCCINATE
     Dosage: UNK

REACTIONS (10)
  - Pain in extremity [Fatal]
  - Cognitive disorder [Fatal]
  - Non-Hodgkin^s lymphoma [Fatal]
  - Pneumonia [Fatal]
  - Pain [Fatal]
  - Femur fracture [Fatal]
  - Depression [Fatal]
  - Infection [Fatal]
  - Septic shock [Fatal]
  - Disorientation [Fatal]

NARRATIVE: CASE EVENT DATE: 201807
